FAERS Safety Report 20030443 (Version 1)
Quarter: 2021Q4

REPORT INFORMATION
  Report Type: Spontaneous
  Country: US (occurrence: US)
  Receive Date: 20211103
  Receipt Date: 20211103
  Transmission Date: 20220303
  Serious: No
  Sender: FDA-Public Use
  Company Number: US-TAKEDA-US201945132

PATIENT
  Age: 60 Year
  Sex: Female

DRUGS (2)
  1. CUVITRU [Suspect]
     Active Substance: HUMAN IMMUNOGLOBULIN G
     Indication: Selective polysaccharide antibody deficiency
     Dosage: 45 MILLILITER
     Route: 058
     Dates: start: 2017, end: 201904
  2. HIZENTRA [Suspect]
     Active Substance: HUMAN IMMUNOGLOBULIN G
     Indication: Selective polysaccharide antibody deficiency
     Dosage: UNK
     Route: 065
     Dates: start: 2020

REACTIONS (4)
  - Drug ineffective [Unknown]
  - Product availability issue [Unknown]
  - Inability to afford medication [Unknown]
  - Incorrect product administration duration [Unknown]

NARRATIVE: CASE EVENT DATE: 20190531
